FAERS Safety Report 9189233 (Version 1)
Quarter: 2013Q1

REPORT INFORMATION
  Report Type: Spontaneous
  Country: MY (occurrence: None)
  Receive Date: 20130321
  Receipt Date: 20130321
  Transmission Date: 20140127
  Serious: Yes (Other)
  Sender: FDA-Public Use
  Company Number: None

PATIENT
  Age: 52 Year
  Sex: Male
  Weight: 81 kg

DRUGS (1)
  1. DOXAZOSIN MESYLATE [Suspect]
     Indication: BENIGN PROSTATIC HYPERPLASIA
     Dosage: 4 MG ONCE A DAY PO
     Route: 048
     Dates: start: 20121120, end: 20130318

REACTIONS (1)
  - Urticaria [None]
